FAERS Safety Report 24876495 (Version 1)
Quarter: 2025Q1

REPORT INFORMATION
  Report Type: Spontaneous
  Country: FR (occurrence: FR)
  Receive Date: 20250123
  Receipt Date: 20250123
  Transmission Date: 20250408
  Serious: Yes (Life-Threatening, Other)
  Sender: AUROBINDO
  Company Number: FR-AFSSAPS-PO2025000009

PATIENT
  Age: 87 Year
  Sex: Male
  Weight: 64.7 kg

DRUGS (3)
  1. DIAZEPAM [Suspect]
     Active Substance: DIAZEPAM
     Indication: Mixed anxiety and depressive disorder
     Dosage: 12 MILLIGRAM, ONCE A DAY
     Route: 048
     Dates: start: 20240713, end: 20240718
  2. MIDAZOLAM [Suspect]
     Active Substance: MIDAZOLAM
     Indication: Mixed anxiety and depressive disorder
     Dosage: 0.2 MILLIGRAM, ONCE A DAY
     Route: 030
     Dates: start: 202406, end: 20240713
  3. OXAZEPAM [Suspect]
     Active Substance: OXAZEPAM
     Indication: Mixed anxiety and depressive disorder
     Dosage: 1 DOSAGE FORM, ONCE A DAY
     Route: 048
     Dates: start: 20240713, end: 20240714

REACTIONS (1)
  - Coma [Recovered/Resolved]

NARRATIVE: CASE EVENT DATE: 20240714
